FAERS Safety Report 23486875 (Version 3)
Quarter: 2024Q1

REPORT INFORMATION
  Report Type: Other
  Country: US (occurrence: US)
  Receive Date: 20240206
  Receipt Date: 20240313
  Transmission Date: 20240410
  Serious: No
  Sender: FDA-Public Use
  Company Number: US-TRAVERE-2024TVT00023

PATIENT
  Age: 54 Year
  Sex: Female

DRUGS (1)
  1. FILSPARI [Suspect]
     Active Substance: SPARSENTAN
     Indication: IgA nephropathy
     Dosage: 2 200MG TABLETS DAILY
     Route: 048
     Dates: start: 20240103

REACTIONS (6)
  - Urticaria [Unknown]
  - Blood potassium increased [Unknown]
  - Dizziness [Recovering/Resolving]
  - Fall [Unknown]
  - Abdominal pain upper [Unknown]
  - Nausea [Unknown]

NARRATIVE: CASE EVENT DATE: 20240201
